FAERS Safety Report 8116331-8 (Version None)
Quarter: 2012Q1

REPORT INFORMATION
  Report Type: 
  Country: None (occurrence: None)
  Receive Date: 20120206
  Receipt Date: 20120131
  Transmission Date: 20120608
  Serious: Yes (Life-Threatening, Hospitalization, Disabling, Other)
  Sender: FDA-Public Use
  Company Number: US-GLAXOSMITHKLINE-A0964023A

PATIENT
  Age: 14 Year
  Sex: Male

DRUGS (2)
  1. STIMULANT [Concomitant]
  2. LAMICTAL [Suspect]
     Indication: AFFECTIVE DISORDER
     Dosage: 50MG PER DAY
     Route: 048
     Dates: start: 20091208, end: 20100210

REACTIONS (11)
  - CHAPPED LIPS [None]
  - OCULAR HYPERAEMIA [None]
  - CONJUNCTIVITIS INFECTIVE [None]
  - TOXIC EPIDERMAL NECROLYSIS [None]
  - LIP SWELLING [None]
  - STEVENS-JOHNSON SYNDROME [None]
  - EYE INJURY [None]
  - SKIN DISORDER [None]
  - PRODUCT QUALITY ISSUE [None]
  - EYE IRRITATION [None]
  - TREATMENT NONCOMPLIANCE [None]
